FAERS Safety Report 9447315 (Version 4)
Quarter: 2014Q2

REPORT INFORMATION
  Report Type: Report from Study
  Country: US (occurrence: US)
  Receive Date: 20130808
  Receipt Date: 20140616
  Transmission Date: 20141212
  Serious: Yes (Other)
  Sender: FDA-Public Use
  Company Number: US-BIOGENIDEC-2013BI071583

PATIENT
  Sex: Female

DRUGS (2)
  1. AVONEX [Suspect]
     Indication: MULTIPLE SCLEROSIS
     Route: 030
  2. AVONEX [Suspect]
     Indication: MULTIPLE SCLEROSIS
     Route: 030
     Dates: end: 20060428

REACTIONS (9)
  - Rectal cancer [Recovered/Resolved]
  - Neoplasm malignant [Unknown]
  - Lipoma [Recovered/Resolved with Sequelae]
  - Vertigo [Recovered/Resolved with Sequelae]
  - Neoplasm [Recovered/Resolved with Sequelae]
  - Decreased appetite [Recovered/Resolved]
  - Diarrhoea [Unknown]
  - Nausea [Unknown]
  - Pyrexia [Recovered/Resolved]
